FAERS Safety Report 9243264 (Version 1)
Quarter: 2013Q2

REPORT INFORMATION
  Report Type: Spontaneous
  Country: US (occurrence: US)
  Receive Date: 20130419
  Receipt Date: 20130419
  Transmission Date: 20140414
  Serious: No
  Sender: FDA-Public Use
  Company Number: US-ASTRAZENECA-2008UW25888

PATIENT
  Age: 62 Year
  Sex: Female

DRUGS (14)
  1. NEXIUM [Suspect]
     Indication: GASTRIC DISORDER
     Route: 048
  2. NEXIUM [Suspect]
     Indication: HIATUS HERNIA
     Route: 048
  3. NEXIUM [Suspect]
     Indication: IRRITABLE BOWEL SYNDROME
     Route: 048
  4. NEXIUM [Suspect]
     Indication: BARRETT^S OESOPHAGUS
     Route: 048
  5. NEXIUM [Suspect]
     Indication: GASTRIC DISORDER
     Route: 048
  6. NEXIUM [Suspect]
     Indication: HIATUS HERNIA
     Route: 048
  7. NEXIUM [Suspect]
     Indication: IRRITABLE BOWEL SYNDROME
     Route: 048
  8. NEXIUM [Suspect]
     Indication: BARRETT^S OESOPHAGUS
     Route: 048
  9. NEXIUM [Suspect]
     Indication: GASTRIC DISORDER
     Route: 048
  10. NEXIUM [Suspect]
     Indication: HIATUS HERNIA
     Route: 048
  11. NEXIUM [Suspect]
     Indication: IRRITABLE BOWEL SYNDROME
     Route: 048
  12. NEXIUM [Suspect]
     Indication: BARRETT^S OESOPHAGUS
     Route: 048
  13. RHINOCORT AQUA [Suspect]
     Indication: SINUS DISORDER
     Route: 045
  14. SYNTHROID [Concomitant]

REACTIONS (3)
  - Muscle spasms [Unknown]
  - Gastrointestinal disorder [Unknown]
  - Systemic lupus erythematosus [Unknown]
